FAERS Safety Report 23457969 (Version 1)
Quarter: 2024Q1

REPORT INFORMATION
  Report Type: Spontaneous
  Country: AR (occurrence: AR)
  Receive Date: 20240130
  Receipt Date: 20240130
  Transmission Date: 20240409
  Serious: Yes (Life-Threatening, Hospitalization)
  Sender: FDA-Public Use
  Company Number: AR-002147023-NVSC2023AR180540

PATIENT
  Sex: Female

DRUGS (4)
  1. ANAFRANIL [Suspect]
     Active Substance: CLOMIPRAMINE HYDROCHLORIDE
     Dosage: 75 MG, QD
     Route: 048
     Dates: start: 202002
  2. ANAFRANIL [Suspect]
     Active Substance: CLOMIPRAMINE HYDROCHLORIDE
     Indication: Depression
     Dosage: 75 MG, QD (BY MOUTH) (2017, 2018 OR 2019)
     Route: 048
  3. LEVOMEPROMAZINE [Concomitant]
     Active Substance: LEVOMEPROMAZINE
     Indication: Insomnia
     Dosage: 12.5 MG (AT NIGHT)
     Route: 065
  4. LORAZEPAM [Concomitant]
     Active Substance: LORAZEPAM
     Indication: Depression
     Dosage: UNK (HALF OF 0.25), (IN THE MORNING AND AT NIGHT)
     Route: 065

REACTIONS (14)
  - Malaise [Unknown]
  - Emotional disorder [Unknown]
  - Cerebrovascular accident [Unknown]
  - Haemangioma [Unknown]
  - Depression [Unknown]
  - Product availability issue [Unknown]
  - Gait disturbance [Unknown]
  - Crying [Unknown]
  - Depressed mood [Unknown]
  - Cerebral disorder [Unknown]
  - Hyperhidrosis [Unknown]
  - Fatigue [Unknown]
  - Anxiety [Unknown]
  - Headache [Unknown]

NARRATIVE: CASE EVENT DATE: 20170101
